FAERS Safety Report 9613189 (Version 1)
Quarter: 2013Q4

REPORT INFORMATION
  Report Type: Spontaneous
  Country: IN (occurrence: IN)
  Receive Date: 20131010
  Receipt Date: 20131010
  Transmission Date: 20140711
  Serious: Yes (Life-Threatening, Other)
  Sender: FDA-Public Use
  Company Number: IN-JHP PHARMACEUTICALS, LLC-JHP201300600

PATIENT
  Age: 62 Year
  Sex: Male

DRUGS (2)
  1. ADRENALIN [Suspect]
     Indication: ANAPHYLACTIC REACTION
     Dosage: 1 MG, (1:1000) OVER 5 MINUTES
     Route: 030
  2. DICLOFENAC [Suspect]
     Indication: TOOTHACHE

REACTIONS (1)
  - Acute myocardial infarction [Recovered/Resolved]
